FAERS Safety Report 14650630 (Version 1)
Quarter: 2018Q1

REPORT INFORMATION
  Report Type: Spontaneous
  Country: CA (occurrence: CA)
  Receive Date: 20180316
  Receipt Date: 20180316
  Transmission Date: 20180509
  Serious: Yes (Hospitalization, Other)
  Sender: FDA-Public Use
  Company Number: CA-TEVA-2018-CA-868639

PATIENT
  Age: 82 Year
  Sex: Female
  Weight: 90.8 kg

DRUGS (10)
  1. PANTOPRAZOLE [Concomitant]
     Active Substance: PANTOPRAZOLE
  2. VALSARTAN. [Concomitant]
     Active Substance: VALSARTAN
  3. FUROSEMIDE. [Concomitant]
     Active Substance: FUROSEMIDE
  4. RIVAROXABAN (BAY597939) VS. ASA [Concomitant]
  5. TEVA-CEPHALEXIN [Suspect]
     Active Substance: CEPHALEXIN
     Indication: CELLULITIS
     Dosage: 2000 MILLIGRAM DAILY;
     Route: 048
  6. PRISTIQ EXTENDED-RELEASE [Concomitant]
     Active Substance: DESVENLAFAXINE SUCCINATE
  7. ACETAMINOPHEN. [Concomitant]
     Active Substance: ACETAMINOPHEN
  8. DILTIAZEM. [Concomitant]
     Active Substance: DILTIAZEM
  9. ATORVASTATIN [Concomitant]
     Active Substance: ATORVASTATIN
  10. BETAMETHASONE. [Concomitant]
     Active Substance: BETAMETHASONE

REACTIONS (2)
  - Rash pruritic [Unknown]
  - Rash erythematous [Unknown]
